FAERS Safety Report 6167555-0 (Version None)
Quarter: 2009Q2

REPORT INFORMATION
  Report Type: 
  Country: None (occurrence: None)
  Receive Date: 20090424
  Receipt Date: 20090410
  Transmission Date: 20091009
  Serious: Yes (Hospitalization, Other)
  Sender: FDA-Public Use
  Company Number: US-PFIZER INC-2009203007

PATIENT
  Sex: Female

DRUGS (10)
  1. GEODON [Suspect]
     Indication: DEPRESSION
  2. BETASERON [Suspect]
     Indication: MULTIPLE SCLEROSIS RELAPSE
     Dosage: 8 MIU, UNK
     Route: 058
     Dates: start: 20040104
  3. WELLBUTRIN [Concomitant]
     Indication: BIPOLAR I DISORDER
     Dosage: UNK
  4. WELLBUTRIN [Concomitant]
     Indication: BIPOLAR DISORDER
  5. TOPAMAX [Concomitant]
     Indication: BIPOLAR I DISORDER
     Dosage: UNK
  6. TOPAMAX [Concomitant]
     Indication: BIPOLAR DISORDER
  7. CLONAZEPAM [Concomitant]
     Indication: BIPOLAR I DISORDER
     Dosage: UNK
  8. CLONAZEPAM [Concomitant]
     Indication: BIPOLAR DISORDER
  9. TRAZODONE [Concomitant]
     Indication: BIPOLAR I DISORDER
     Dosage: UNK
  10. TRAZODONE [Concomitant]
     Indication: BIPOLAR DISORDER

REACTIONS (4)
  - ANGER [None]
  - CONVULSION [None]
  - FIBROMYALGIA [None]
  - MENTAL DISORDER [None]
